FAERS Safety Report 10098055 (Version 1)
Quarter: 2014Q2

REPORT INFORMATION
  Report Type: Spontaneous
  Country: GB (occurrence: GB)
  Receive Date: 20140423
  Receipt Date: 20140423
  Transmission Date: 20141212
  Serious: Yes (Other)
  Sender: FDA-Public Use
  Company Number: GB-RANBAXY-2014RR-80504

PATIENT
  Age: 67 Year
  Sex: Male

DRUGS (4)
  1. SIMVASTATIN [Suspect]
     Indication: PROPHYLAXIS
     Dosage: 40 MG, UNK
     Route: 048
     Dates: start: 20131227, end: 20140225
  2. CANDESARTAN [Concomitant]
     Indication: HYPERTENSION
     Dosage: 32 MG, DAILY
     Route: 048
     Dates: start: 20081230
  3. OMEPRAZOLE [Concomitant]
     Indication: PROPHYLAXIS
     Dosage: 20 MG, DAILY
     Route: 048
     Dates: start: 20100420
  4. IBUPROFEN [Concomitant]
     Indication: PAIN
     Dosage: 400 MG, BID
     Route: 048
     Dates: start: 20070206

REACTIONS (1)
  - Parotid gland enlargement [Recovered/Resolved]
